FAERS Safety Report 17314702 (Version 1)
Quarter: 2020Q1

REPORT INFORMATION
  Report Type: Spontaneous
  Country: US (occurrence: US)
  Receive Date: 20200123
  Receipt Date: 20200123
  Transmission Date: 20200409
  Serious: Yes (Other)
  Sender: FDA-Public Use
  Company Number: None

PATIENT
  Age: 53 Year
  Sex: Female
  Weight: 83.7 kg

DRUGS (16)
  1. METFORMIN TWICE A DAY [Concomitant]
  2. FIBER PILLS [Concomitant]
  3. OMEPRAZOLE 20MG CAP SAN [Suspect]
     Active Substance: OMEPRAZOLE
     Indication: GASTROOESOPHAGEAL REFLUX DISEASE
     Dosage: ?          QUANTITY:30 CAPSULE(S);?
     Route: 048
     Dates: start: 20200115, end: 20200117
  4. BENTYL TWICE A DAY [Concomitant]
  5. FLONASE SPRAY TWICE A DAY [Concomitant]
  6. ONDANSETRON AS NEEDED [Concomitant]
  7. LEVOCETIRIZINE DHCL (XZAL) DAILY [Concomitant]
  8. ALLEGRA-D 24HR [Concomitant]
  9. MONTELUKAST DAILY [Concomitant]
  10. AZELASTINE HCL SPRAY ONCE A DAY [Concomitant]
  11. MAGNESIUM [Concomitant]
     Active Substance: MAGNESIUM
  12. PROBIOTICS [Concomitant]
     Active Substance: PROBIOTICS NOS
  13. OMEPRAZOLE 20MG CAP SAN [Suspect]
     Active Substance: OMEPRAZOLE
     Indication: DYSPEPSIA
     Dosage: ?          QUANTITY:30 CAPSULE(S);?
     Route: 048
     Dates: start: 20200115, end: 20200117
  14. OLOPATADINE 0.1% DRO APO AS NEEDED [Concomitant]
  15. PEPSID TWICE A DAY [Concomitant]
  16. VITAMIN D [Concomitant]
     Active Substance: VITAMIN D NOS

REACTIONS (2)
  - Diarrhoea [None]
  - Abdominal pain [None]

NARRATIVE: CASE EVENT DATE: 20200115
